FAERS Safety Report 17808328 (Version 1)
Quarter: 2020Q2

REPORT INFORMATION
  Report Type: Spontaneous
  Country: ES (occurrence: ES)
  Receive Date: 20200520
  Receipt Date: 20200520
  Transmission Date: 20200714
  Serious: Yes (Other)
  Sender: FDA-Public Use
  Company Number: ES-ACCORD-182440

PATIENT
  Age: 18 Month
  Sex: Female

DRUGS (13)
  1. FOSCARNET [Suspect]
     Active Substance: FOSCARNET
     Indication: CYTOMEGALOVIRUS CHORIORETINITIS
     Route: 065
  2. ANTITHYMOCYTE IMMUNOGLOBULIN [Concomitant]
     Active Substance: THYMOCYTE IMMUNE GLOBULIN NOS
     Indication: BONE MARROW CONDITIONING REGIMEN
     Route: 065
  3. BUSULFAN. [Suspect]
     Active Substance: BUSULFAN
     Indication: BONE MARROW CONDITIONING REGIMEN
     Route: 065
  4. ETOPOSIDE. [Suspect]
     Active Substance: ETOPOSIDE
     Indication: BONE MARROW CONDITIONING REGIMEN
     Route: 065
  5. GANCICLOVIR. [Suspect]
     Active Substance: GANCICLOVIR
     Indication: CYTOMEGALOVIRUS CHORIORETINITIS
     Route: 065
  6. GANCICLOVIR. [Suspect]
     Active Substance: GANCICLOVIR
     Indication: ENCEPHALITIS CYTOMEGALOVIRUS
     Route: 065
  7. VALGANCICLOVIR/VALGANCICLOVIR HYDROCHLORIDE [Suspect]
     Active Substance: VALGANCICLOVIR
     Indication: CYTOMEGALOVIRUS INFECTION
     Dosage: UNK FOR 9 WEEKS
     Route: 065
  8. GANCICLOVIR. [Suspect]
     Active Substance: GANCICLOVIR
     Indication: CYTOMEGALOVIRUS VIRAEMIA
     Route: 065
  9. CYCLOPHOSPHAMIDE/CYCLOPHOSPHAMIDE MONOHYDRATE [Suspect]
     Active Substance: CYCLOPHOSPHAMIDE
     Indication: BONE MARROW CONDITIONING REGIMEN
     Route: 065
  10. IMMUNOGLOBULIN [Concomitant]
     Indication: ENCEPHALITIS CYTOMEGALOVIRUS
     Dosage: 1 G/KG; EVERY 2 WEEKS
     Route: 042
  11. METHYLPREDNISOLONE. [Suspect]
     Active Substance: METHYLPREDNISOLONE
     Indication: GRAFT VERSUS HOST DISEASE
     Route: 065
  12. CMV-SPECIFIC IGG [Concomitant]
     Indication: ENCEPHALITIS CYTOMEGALOVIRUS
     Dosage: WEEKLY
     Route: 037
  13. FOSCARNET [Suspect]
     Active Substance: FOSCARNET
     Indication: ENCEPHALITIS CYTOMEGALOVIRUS
     Route: 065

REACTIONS (8)
  - Irritability [Unknown]
  - Cytomegalovirus viraemia [Recovered/Resolved]
  - Pyrexia [Unknown]
  - Nephropathy toxic [Unknown]
  - Graft versus host disease in skin [Recovered/Resolved]
  - Encephalitis cytomegalovirus [Recovered/Resolved]
  - Cytomegalovirus chorioretinitis [Recovered/Resolved]
  - Graft versus host disease in gastrointestinal tract [Recovered/Resolved]
